FAERS Safety Report 8892563 (Version 1)
Quarter: 2012Q4

REPORT INFORMATION
  Report Type: 
  Country: US (occurrence: US)
  Receive Date: 20121107
  Receipt Date: 20121107
  Transmission Date: 20130627
  Serious: No
  Sender: FDA-Public Use
  Company Number: US-AMGEN-USASP2011057275

PATIENT
  Age: 53 Year
  Sex: Male
  Weight: 51.25 kg

DRUGS (2)
  1. ENBREL [Suspect]
     Indication: PSORIASIS
     Dosage: 50 mg, 2 times/wk
     Route: 058
  2. ENALAPRIL [Concomitant]
     Dosage: 10 mg, UNK

REACTIONS (1)
  - Injection site bruising [Unknown]
